FAERS Safety Report 4576930-7 (Version None)
Quarter: 2005Q1

REPORT INFORMATION
  Report Type: 
  Country: None (occurrence: None)
  Receive Date: 20050208
  Receipt Date: 20050127
  Transmission Date: 20050727
  Serious: Yes (Death)
  Sender: FDA-Public Use
  Company Number: USA050188318

PATIENT
  Age: 26 Year
  Sex: Male

DRUGS (2)
  1. STRATTERA [Suspect]
     Indication: ATTENTION DEFICIT/HYPERACTIVITY DISORDER
     Dosage: 80 MG/1 DAY
  2. TYLENOL (CAPLET) [Concomitant]

REACTIONS (6)
  - DRUG TOXICITY [None]
  - HEPATIC FAILURE [None]
  - MALAISE [None]
  - RENAL FAILURE [None]
  - TREATMENT NONCOMPLIANCE [None]
  - VOMITING [None]
